FAERS Safety Report 8165300 (Version 5)
Quarter: 2013Q4

REPORT INFORMATION
  Report Type: Spontaneous
  Country: US (occurrence: US)
  Receive Date: 20111003
  Receipt Date: 20131223
  Transmission Date: 20140711
  Serious: Yes (Hospitalization, Other)
  Sender: FDA-Public Use
  Company Number: US-US-EMD SERONO, INC.-7085423

PATIENT
  Age: 51 Year
  Sex: Female
  Weight: 75 kg

DRUGS (2)
  1. REBIF [Suspect]
     Indication: MULTIPLE SCLEROSIS
     Route: 058
     Dates: start: 20100810
  2. REBIF [Suspect]
     Route: 058

REACTIONS (6)
  - Wrist fracture [Unknown]
  - Fall [Unknown]
  - Patient-device incompatibility [Unknown]
  - Head injury [Unknown]
  - Abdominal discomfort [Unknown]
  - Injection site erythema [Not Recovered/Not Resolved]
